FAERS Safety Report 8277758-7 (Version None)
Quarter: 2012Q2

REPORT INFORMATION
  Report Type: 
  Country: None (occurrence: None)
  Receive Date: 20120412
  Receipt Date: 20120404
  Transmission Date: 20120825
  Serious: No
  Sender: FDA-Public Use
  Company Number: US-B.I. PHARMACEUTICALS,INC./RIDGEFIELD-2012-BP-06337BP

PATIENT
  Sex: Female

DRUGS (4)
  1. SPIRIVA [Suspect]
     Indication: CHRONIC OBSTRUCTIVE PULMONARY DISEASE
     Dosage: 18 MCG
     Route: 055
     Dates: start: 20120324, end: 20120331
  2. CHANTIX [Concomitant]
     Indication: EX-TOBACCO USER
     Dosage: 1 MG
     Route: 048
     Dates: start: 20120324, end: 20120324
  3. AMOXICILLIN [Concomitant]
     Indication: BRONCHITIS
     Dates: start: 20120401
  4. CHANTIX [Concomitant]
     Dosage: 2 MG
     Route: 048
     Dates: start: 20120325

REACTIONS (2)
  - PHARYNGEAL OEDEMA [None]
  - LYMPHADENOPATHY [None]
